FAERS Safety Report 5076092-6 (Version None)
Quarter: 2006Q3

REPORT INFORMATION
  Report Type: 
  Country: None (occurrence: None)
  Receive Date: 20060807
  Receipt Date: 20060725
  Transmission Date: 20061208
  Serious: Yes (Other)
  Sender: FDA-Public Use
  Company Number: 2006092206

PATIENT
  Sex: Female
  Weight: 108.8633 kg

DRUGS (10)
  1. XANAX [Suspect]
     Indication: STRESS
     Dosage: 5 MG (1 MG, 5 IN 1 D)   2.5 YEARS AGO
  2. ALL OTHER THERAPEUTIC PRODUCTS [Concomitant]
  3. ASCORBIC ACID [Concomitant]
  4. CALCIUM GLUCONATE [Concomitant]
  5. VITAMIN B-12 [Concomitant]
  6. SYNTHROID [Concomitant]
  7. SOMA [Concomitant]
  8. OXYCONTIN [Concomitant]
  9. OXYCODONE HCL [Concomitant]
  10. AMBIEN [Concomitant]

REACTIONS (16)
  - BEDRIDDEN [None]
  - BLOOD PRESSURE DECREASED [None]
  - BODY HEIGHT DECREASED [None]
  - BONE DISORDER [None]
  - BREAST SWELLING [None]
  - DISORIENTATION [None]
  - DRUG EFFECT DECREASED [None]
  - FALL [None]
  - HYPERTENSION [None]
  - IRRITABILITY [None]
  - MUSCLE SPASMS [None]
  - MYALGIA [None]
  - TOOTH FRACTURE [None]
  - UPPER LIMB FRACTURE [None]
  - VITAMIN D DECREASED [None]
  - WRIST FRACTURE [None]
